FAERS Safety Report 16849646 (Version 1)
Quarter: 2019Q4

REPORT INFORMATION
  Report Type: Spontaneous
  Country: US (occurrence: US)
  Receive Date: 20190925
  Receipt Date: 20190925
  Transmission Date: 20200122
  Serious: Yes (Other)
  Sender: FDA-Public Use
  Company Number: None

PATIENT
  Age: 51 Year
  Sex: Female
  Weight: 81 kg

DRUGS (10)
  1. VITAMIN B12 [Concomitant]
     Active Substance: CYANOCOBALAMIN
  2. VITAMIN [Concomitant]
     Active Substance: VITAMINS
  3. NORCO WHEN MIGRAINE APPEARS [Concomitant]
  4. ZOMIG WHEN MIGRAIN APPEARS [Concomitant]
  5. COD LIVER OIL [Concomitant]
     Active Substance: COD LIVER OIL
  6. EMGALITY [Suspect]
     Active Substance: GALCANEZUMAB-GNLM
     Indication: MIGRAINE
     Dosage: ?          QUANTITY:1 INJECTION(S);OTHER FREQUENCY:MONTHLY;?
     Route: 030
     Dates: start: 20190318
  7. VITAMIN D [Concomitant]
     Active Substance: VITAMIN D NOS
  8. SIMVASTATIN. [Concomitant]
     Active Substance: SIMVASTATIN
  9. CALCIUM [Concomitant]
     Active Substance: CALCIUM
  10. OCCUVITE [Concomitant]

REACTIONS (2)
  - Libido decreased [None]
  - Migraine [None]

NARRATIVE: CASE EVENT DATE: 20190921
